FAERS Safety Report 5072187-1 (Version None)
Quarter: 2006Q3

REPORT INFORMATION
  Report Type: 
  Country: None (occurrence: None)
  Receive Date: 20060801
  Receipt Date: 20060721
  Transmission Date: 20061208
  Serious: Yes (Other)
  Sender: FDA-Public Use
  Company Number: 2006088936

PATIENT
  Age: 76 Year
  Sex: Male
  Weight: 81.6475 kg

DRUGS (1)
  1. LIPITOR [Suspect]
     Indication: BLOOD CHOLESTEROL INCREASED
     Dosage: 20 MG (20 MG, 1 IN 1 D)

REACTIONS (4)
  - BLOOD CHOLESTEROL INCREASED [None]
  - CARDIAC PACEMAKER INSERTION [None]
  - PHARMACEUTICAL PRODUCT COUNTERFEIT [None]
  - POOR QUALITY DRUG ADMINISTERED [None]
